FAERS Safety Report 9695776 (Version 1)
Quarter: 2013Q4

REPORT INFORMATION
  Report Type: Spontaneous
  Country: IT (occurrence: IT)
  Receive Date: 20131119
  Receipt Date: 20131119
  Transmission Date: 20140711
  Serious: Yes (Hospitalization)
  Sender: FDA-Public Use
  Company Number: IT-TEVA-444069ISR

PATIENT
  Age: 74 Year
  Sex: Male

DRUGS (8)
  1. TAMSULOSINA CLORIDRATO [Suspect]
     Dates: start: 20120908, end: 20130907
  2. FUROSEMIDE [Suspect]
     Dates: start: 20120708, end: 20130907
  3. CATAPRESAN TTS 2.5 MG [Suspect]
     Dosage: 1 DOSAGE FORMS DAILY;
     Route: 062
     Dates: start: 20120908, end: 20130907
  4. VASCOMAN 20 MG [Suspect]
     Dates: start: 20120908, end: 20130907
  5. ARANESP 150 MCG [Concomitant]
  6. CALCITRIOLO [Concomitant]
  7. ALLOPURINOLO [Concomitant]
  8. ACIDO ACETILSALICILICO [Concomitant]

REACTIONS (2)
  - Orthostatic hypotension [Recovering/Resolving]
  - Syncope [Recovering/Resolving]
